FAERS Safety Report 5792918-2 (Version None)
Quarter: 2008Q2

REPORT INFORMATION
  Report Type: 
  Country: None (occurrence: None)
  Receive Date: 20080627
  Receipt Date: 20071025
  Transmission Date: 20081010
  Serious: No
  Sender: FDA-Public Use
  Company Number: US-BAYER-US-2007-040367

PATIENT
  Age: 46 Year
  Sex: Female
  Weight: 83 kg

DRUGS (7)
  1. ULTRAVIST 300 [Suspect]
     Indication: COMPUTERISED TOMOGRAM
     Route: 042
     Dates: start: 20071009, end: 20071009
  2. CONTRAST MEDIA [Concomitant]
     Indication: COMPUTERISED TOMOGRAM
     Route: 048
     Dates: start: 20071009, end: 20071009
  3. NAPROXEN [Concomitant]
  4. ZOLMITRIPTAN [Concomitant]
  5. BUPROPION HCL [Concomitant]
  6. CALCIUM [Concomitant]
  7. VITAMIN D [Concomitant]

REACTIONS (10)
  - AURICULAR SWELLING [None]
  - BLOOD PRESSURE INCREASED [None]
  - CONTRAST MEDIA ALLERGY [None]
  - ERYTHEMA [None]
  - FEELING HOT [None]
  - NASAL CONGESTION [None]
  - OEDEMA PERIPHERAL [None]
  - PRURITUS [None]
  - RASH [None]
  - URTICARIA [None]
